FAERS Safety Report 14432417 (Version 3)
Quarter: 2018Q1

REPORT INFORMATION
  Report Type: Report from Study
  Country: JP (occurrence: JP)
  Receive Date: 20180124
  Receipt Date: 20180322
  Transmission Date: 20180509
  Serious: Yes (Other)
  Sender: FDA-Public Use
  Company Number: PHJP2018JP001115

PATIENT
  Age: 70 Year
  Sex: Male
  Weight: 68.5 kg

DRUGS (16)
  1. CERTICAN [Suspect]
     Active Substance: EVEROLIMUS
     Dosage: 0.25 MG, QD
     Route: 048
     Dates: start: 20151210, end: 20160131
  2. MYCOPHENOLATE MOFETIL. [Concomitant]
     Active Substance: MYCOPHENOLATE MOFETIL
     Indication: RENAL TRANSPLANT
     Dosage: 500 MG, UNK
     Route: 065
     Dates: start: 20151008
  3. MYCOPHENOLATE MOFETIL. [Concomitant]
     Active Substance: MYCOPHENOLATE MOFETIL
     Dosage: 1000 MG, UNK
     Route: 065
     Dates: start: 20171113
  4. LOSARTAN POTASSIUM. [Concomitant]
     Active Substance: LOSARTAN POTASSIUM
     Indication: HYPERTENSION
     Route: 065
  5. CICLOSPORIN [Concomitant]
     Active Substance: CYCLOSPORINE
     Dosage: 70 MG, UNK
     Route: 065
     Dates: start: 20160509
  6. MYCOPHENOLATE MOFETIL. [Concomitant]
     Active Substance: MYCOPHENOLATE MOFETIL
     Dosage: 1000 MG, UNK
     Route: 065
     Dates: start: 20160509
  7. MYCOPHENOLATE MOFETIL. [Concomitant]
     Active Substance: MYCOPHENOLATE MOFETIL
     Dosage: 500 MG, UNK
     Route: 065
     Dates: start: 20161017
  8. CICLOSPORIN [Concomitant]
     Active Substance: CYCLOSPORINE
     Indication: RENAL TRANSPLANT
     Dosage: 90 MG, UNK
     Route: 065
     Dates: start: 20151008
  9. MYCOPHENOLATE MOFETIL. [Concomitant]
     Active Substance: MYCOPHENOLATE MOFETIL
     Dosage: 500 MG, UNK
     Route: 065
     Dates: start: 20151210
  10. MYCOPHENOLATE MOFETIL. [Concomitant]
     Active Substance: MYCOPHENOLATE MOFETIL
     Dosage: 1000 MG, UNK
     Route: 065
     Dates: start: 20160201
  11. CERTICAN [Suspect]
     Active Substance: EVEROLIMUS
     Indication: RENAL TRANSPLANT
     Dosage: 0.5 MG, QD
     Route: 048
     Dates: start: 20151105, end: 20151209
  12. CERTICAN [Suspect]
     Active Substance: EVEROLIMUS
     Dosage: 0.5 MG, QD
     Route: 048
     Dates: start: 20160201
  13. CICLOSPORIN [Concomitant]
     Active Substance: CYCLOSPORINE
     Dosage: 70 MG, UNK
     Route: 065
     Dates: start: 20161017
  14. CICLOSPORIN [Concomitant]
     Active Substance: CYCLOSPORINE
     Dosage: 70 MG, UNK
     Route: 065
     Dates: start: 20151210
  15. CICLOSPORIN [Concomitant]
     Active Substance: CYCLOSPORINE
     Dosage: 70 MG, UNK
     Route: 065
     Dates: start: 20160201
  16. CICLOSPORIN [Concomitant]
     Active Substance: CYCLOSPORINE
     Dosage: 50 MG, UNK
     Route: 065
     Dates: start: 20171113

REACTIONS (2)
  - Hypertension [Not Recovered/Not Resolved]
  - Creatinine urine increased [Unknown]

NARRATIVE: CASE EVENT DATE: 20171023
